FAERS Safety Report 9737428 (Version 2)
Quarter: 2013Q4

REPORT INFORMATION
  Report Type: Spontaneous
  Country: US (occurrence: US)
  Receive Date: 20131206
  Receipt Date: 20131209
  Transmission Date: 20140711
  Serious: Yes (Death, Other)
  Sender: FDA-Public Use
  Company Number: US-GILEAD-2013-0089344

PATIENT
  Age: 60 Year
  Sex: Female

DRUGS (12)
  1. LETAIRIS [Suspect]
     Indication: PRODUCT USED FOR UNKNOWN INDICATION
     Dosage: 5 MG, UNK
     Route: 048
     Dates: start: 20120228
  2. LETAIRIS [Suspect]
     Dosage: 10 MG, QD
     Route: 048
     Dates: start: 20120301
  3. DIGOXIN [Concomitant]
  4. FUROSEMIDE [Concomitant]
  5. PREDNISONE [Concomitant]
  6. CARAFATE [Concomitant]
  7. PRILOSEC                           /00661201/ [Concomitant]
  8. ALBUTEROL                          /00139501/ [Concomitant]
  9. SYMBICORT [Concomitant]
  10. SPIRIVA [Concomitant]
  11. WARFARIN [Concomitant]
  12. MAGNESIUM [Concomitant]

REACTIONS (1)
  - Death [Fatal]
